FAERS Safety Report 18870420 (Version 3)
Quarter: 2022Q1

REPORT INFORMATION
  Report Type: Spontaneous
  Country: US (occurrence: US)
  Receive Date: 20210209
  Receipt Date: 20220302
  Transmission Date: 20220423
  Serious: Yes (Other)
  Sender: FDA-Public Use
  Company Number: US-BEH-2021127992

PATIENT
  Age: 37 Year
  Sex: Female

DRUGS (3)
  1. HAEGARDA [Suspect]
     Active Substance: HUMAN C1-ESTERASE INHIBITOR
     Indication: Hereditary angioedema
     Dosage: 4000 INTERNATIONAL UNIT, BIW
     Route: 058
     Dates: start: 2017
  2. HAEGARDA [Suspect]
     Active Substance: HUMAN C1-ESTERASE INHIBITOR
     Indication: Prophylaxis
     Dosage: UNK, PRN
     Route: 065
     Dates: start: 202101
  3. HAEGARDA [Suspect]
     Active Substance: HUMAN C1-ESTERASE INHIBITOR
     Dosage: 4000 INTERNATIONAL UNIT/KILOGRAM, BIW
     Route: 058

REACTIONS (9)
  - Hereditary angioedema [Recovered/Resolved]
  - No adverse event [Unknown]
  - Off label use [Unknown]
  - Hereditary angioedema [Unknown]
  - Fatigue [Recovering/Resolving]
  - Stress [Unknown]
  - Insurance issue [Unknown]
  - Insurance issue [Recovering/Resolving]
  - Hereditary angioedema [Recovered/Resolved]

NARRATIVE: CASE EVENT DATE: 20210101
